FAERS Safety Report 7725215-6 (Version None)
Quarter: 2011Q3

REPORT INFORMATION
  Report Type: 
  Country: None (occurrence: None)
  Receive Date: 20110901
  Receipt Date: 20110819
  Transmission Date: 20111222
  Serious: Yes (Other)
  Sender: FDA-Public Use
  Company Number: US-AMGEN-USASP2009000281

PATIENT
  Sex: Male

DRUGS (1)
  1. ENBREL [Suspect]

REACTIONS (2)
  - ASTHMA [None]
  - CARDIAC MURMUR [None]
